FAERS Safety Report 6926612-9 (Version None)
Quarter: 2010Q3

REPORT INFORMATION
  Report Type: 
  Country: None (occurrence: None)
  Receive Date: 20100816
  Receipt Date: 20100806
  Transmission Date: 20110219
  Serious: No
  Sender: FDA-Public Use
  Company Number: US-ABBOTT-10P-163-0647028-00

PATIENT
  Sex: Male
  Weight: 81.72 kg

DRUGS (28)
  1. SIMCOR [Suspect]
     Indication: BLOOD CHOLESTEROL INCREASED
     Dates: start: 20100601, end: 20100601
  2. SIMCOR [Suspect]
     Dates: start: 20100601, end: 20100601
  3. LUNESTRA [Concomitant]
     Indication: INSOMNIA
     Route: 048
  4. KLONOPIN [Concomitant]
     Indication: INSOMNIA
     Route: 048
  5. KLONOPIN [Concomitant]
     Indication: ANXIETY
  6. TEMAZEPAM [Concomitant]
     Indication: INSOMNIA
     Route: 048
  7. SEROQUEL [Concomitant]
     Indication: INSOMNIA
     Route: 048
  8. TRAZODONE HCL [Concomitant]
     Indication: INSOMNIA
     Route: 048
  9. KAPIDEX [Concomitant]
     Indication: PRODUCT USED FOR UNKNOWN INDICATION
     Route: 048
  10. ALLOPURINOL [Concomitant]
     Indication: PRODUCT USED FOR UNKNOWN INDICATION
     Route: 048
  11. BENICAR [Concomitant]
     Indication: PRODUCT USED FOR UNKNOWN INDICATION
     Route: 048
  12. KLOR-CON [Concomitant]
     Indication: PRODUCT USED FOR UNKNOWN INDICATION
     Route: 048
  13. GLIPIZIDE [Concomitant]
     Indication: DIABETES MELLITUS
     Route: 048
  14. LEVOTHYROXINE [Concomitant]
     Indication: PRODUCT USED FOR UNKNOWN INDICATION
     Route: 048
  15. COMBIVENT [Concomitant]
     Indication: PRODUCT USED FOR UNKNOWN INDICATION
     Route: 048
  16. TEMOPTIC EYE DROPS [Concomitant]
     Indication: PRODUCT USED FOR UNKNOWN INDICATION
  17. UROXATRAL [Concomitant]
     Indication: PRODUCT USED FOR UNKNOWN INDICATION
     Route: 048
  18. UNKNOWN OTC ANTI ACID MEDICATION [Concomitant]
     Indication: PRODUCT USED FOR UNKNOWN INDICATION
  19. FUROSEMIDE [Concomitant]
     Indication: HYPERTENSION
  20. POTASSIUM [Concomitant]
     Indication: MINERAL SUPPLEMENTATION
  21. UROXATRAL [Concomitant]
     Indication: BENIGN PROSTATIC HYPERPLASIA
  22. OMEPRAZOLE [Concomitant]
     Indication: GASTROOESOPHAGEAL REFLUX DISEASE
  23. TIMOPTIC [Concomitant]
     Indication: GLAUCOMA
  24. LORAZEPAM [Concomitant]
     Indication: PRODUCT USED FOR UNKNOWN INDICATION
  25. FENOGLIDE [Concomitant]
     Indication: PRODUCT USED FOR UNKNOWN INDICATION
  26. SIMVASTATIN [Concomitant]
     Indication: PRODUCT USED FOR UNKNOWN INDICATION
     Dates: end: 20100801
  27. LUNESTA [Concomitant]
     Indication: PRODUCT USED FOR UNKNOWN INDICATION
  28. LISINOPRIL AND HYROCHLOROTHIAZIDE [Concomitant]
     Indication: PRODUCT USED FOR UNKNOWN INDICATION

REACTIONS (9)
  - ABDOMINAL DISCOMFORT [None]
  - ABDOMINAL PAIN UPPER [None]
  - BACK PAIN [None]
  - COUGH [None]
  - DYSPEPSIA [None]
  - FATIGUE [None]
  - HEADACHE [None]
  - RENAL FUNCTION TEST ABNORMAL [None]
  - TACHYPNOEA [None]
